FAERS Safety Report 4770622-7 (Version None)
Quarter: 2005Q3

REPORT INFORMATION
  Report Type: 
  Country: None (occurrence: None)
  Receive Date: 20050915
  Receipt Date: 20050318
  Transmission Date: 20060218
  Serious: Yes (Life-Threatening, Hospitalization, Disabling)
  Sender: FDA-Public Use
  Company Number: US-MERCK-0503USA03340

PATIENT
  Age: 68 Year
  Sex: Female
  Weight: 76 kg

DRUGS (10)
  1. VIOXX [Suspect]
     Indication: ARTHRITIS
     Route: 048
     Dates: start: 20040109, end: 20040208
  2. VIOXX [Suspect]
     Indication: BACK PAIN
     Route: 048
     Dates: start: 20040109, end: 20040208
  3. LANTUS [Concomitant]
     Indication: DIABETES MELLITUS
     Route: 058
     Dates: start: 20040123
  4. SOLARAY BILBERRY AND LUTEIN [Concomitant]
     Indication: VISUAL DISTURBANCE
     Route: 065
     Dates: start: 20000101
  5. CENTRUM [Concomitant]
     Route: 065
     Dates: start: 20000101
  6. CALCIUM (UNSPECIFIED) [Concomitant]
     Indication: PROPHYLAXIS
     Route: 065
     Dates: start: 19990101
  7. VITAMIN E [Concomitant]
     Indication: ARTHRALGIA
     Route: 065
     Dates: start: 20000101
  8. ASCORBIC ACID [Concomitant]
     Indication: PROPHYLAXIS
     Route: 065
     Dates: start: 20000101
  9. FOLIC ACID [Concomitant]
     Indication: PROPHYLAXIS
     Route: 065
     Dates: start: 20000101
  10. HUMALOG [Concomitant]
     Route: 058

REACTIONS (17)
  - ADVERSE EVENT [None]
  - CARDIAC FAILURE CONGESTIVE [None]
  - DIABETES MELLITUS INADEQUATE CONTROL [None]
  - DIABETIC RETINOPATHY [None]
  - EPISTAXIS [None]
  - EYE DISORDER [None]
  - GALLBLADDER DISORDER [None]
  - MYALGIA [None]
  - MYOCARDIAL INFARCTION [None]
  - PERICARDIAL EFFUSION [None]
  - PHARYNGOLARYNGEAL PAIN [None]
  - PLEURAL EFFUSION [None]
  - RHINITIS ALLERGIC [None]
  - SLEEP APNOEA SYNDROME [None]
  - SOMNOLENCE [None]
  - SWELLING [None]
  - URINARY TRACT INFECTION [None]
